FAERS Safety Report 25132840 (Version 1)
Quarter: 2025Q1

REPORT INFORMATION
  Report Type: Spontaneous
  Country: US (occurrence: US)
  Receive Date: 20250328
  Receipt Date: 20250328
  Transmission Date: 20250408
  Serious: Yes (Hospitalization)
  Sender: BIOVITRUM
  Company Number: US-BIOVITRUM-2025-US-004180

PATIENT
  Sex: Female

DRUGS (2)
  1. KINERET [Suspect]
     Active Substance: ANAKINRA
     Indication: Still^s disease
     Route: 065
  2. KINERET [Suspect]
     Active Substance: ANAKINRA
     Indication: Haemophagocytic lymphohistiocytosis

REACTIONS (5)
  - Rash [Unknown]
  - Condition aggravated [Unknown]
  - Off label use [Recovered/Resolved]
  - Haemophagocytic lymphohistiocytosis [Unknown]
  - Illness [Unknown]
